FAERS Safety Report 7833661-5 (Version None)
Quarter: 2011Q4

REPORT INFORMATION
  Report Type: 
  Country: None (occurrence: None)
  Receive Date: 20111024
  Receipt Date: 20111007
  Transmission Date: 20120403
  Serious: Yes (Other)
  Sender: FDA-Public Use
  Company Number: AU-B.I. PHARMACEUTICALS,INC./RIDGEFIELD-2011-AU-01926AU

PATIENT
  Sex: Male
  Weight: 90 kg

DRUGS (7)
  1. DIAMICRON [Concomitant]
     Dosage: 60 MG
  2. PRINIVIL [Concomitant]
     Dosage: 5 MG
  3. PRADAXA [Suspect]
     Indication: ATRIAL FIBRILLATION
     Dosage: 300 MG
     Dates: start: 20110903, end: 20111006
  4. CRESTOR [Concomitant]
     Dosage: 5 MG
  5. NEXIUM [Concomitant]
     Dosage: 40 MG
  6. METFORMIN HCL [Concomitant]
     Dosage: 2000 MG
  7. SOTALOL HYDROCHLORIDE [Concomitant]
     Dosage: 160 MG

REACTIONS (2)
  - NEPHROLITHIASIS [None]
  - HAEMATURIA [None]
